FAERS Safety Report 4313348-6 (Version None)
Quarter: 2004Q1

REPORT INFORMATION
  Report Type: 
  Country: None (occurrence: None)
  Receive Date: 20040304
  Receipt Date: 20040223
  Transmission Date: 20041129
  Serious: Yes (Hospitalization)
  Sender: FDA-Public Use
  Company Number: DEU-2003-0000618

PATIENT
  Age: 72 Year
  Sex: Male

DRUGS (3)
  1. OXYCODONE HCL [Suspect]
     Indication: ARTHRALGIA
     Dosage: 20 MG, BID, ORAL
     Route: 048
  2. MOVICOL (MACROGOL, SODIUM CHLORIDE, POTASSIUM CHLORIDE, SODIUM BICARBO [Concomitant]
  3. LACTULOSE [Concomitant]

REACTIONS (3)
  - CONSTIPATION [None]
  - DIVERTICULUM [None]
  - INTESTINAL PERFORATION [None]
